FAERS Safety Report 4479923-3 (Version None)
Quarter: 2004Q4

REPORT INFORMATION
  Report Type: 
  Country: None (occurrence: None)
  Receive Date: 20041020
  Receipt Date: 20041012
  Transmission Date: 20050328
  Serious: Yes (Other)
  Sender: FDA-Public Use
  Company Number: PHHO2004DE14345

PATIENT
  Age: 75 Year
  Sex: Male

DRUGS (3)
  1. SANDIMMUNE [Suspect]
     Indication: HEART TRANSPLANT
     Dosage: 75 MG, BID
     Route: 048
     Dates: start: 19990107
  2. SANDIMMUNE [Suspect]
     Dosage: 125 MG / DAY
     Route: 048
  3. TAVOR [Concomitant]

REACTIONS (1)
  - ACUTE PSYCHOSIS [None]
